FAERS Safety Report 23941195 (Version 1)
Quarter: 2024Q2

REPORT INFORMATION
  Report Type: Spontaneous
  Country: US (occurrence: US)
  Receive Date: 20240605
  Receipt Date: 20240605
  Transmission Date: 20240716
  Serious: No
  Sender: FDA-Public Use
  Company Number: US-CADILA HEALTHCARE LIMITED-US-ZYDUS-107393

PATIENT

DRUGS (2)
  1. BACLOFEN [Suspect]
     Active Substance: BACLOFEN
     Indication: Blepharospasm
     Dosage: 20 MILLIGRAM, TID
     Route: 048
     Dates: start: 202404
  2. BACLOFEN [Suspect]
     Active Substance: BACLOFEN
     Indication: Off label use

REACTIONS (3)
  - Drug ineffective [Recovering/Resolving]
  - Product use in unapproved indication [Not Recovered/Not Resolved]
  - Product substitution issue [Not Recovered/Not Resolved]

NARRATIVE: CASE EVENT DATE: 20240401
